FAERS Safety Report 11823208 (Version 1)
Quarter: 2015Q4

REPORT INFORMATION
  Report Type: Report from Study
  Country: FR (occurrence: FR)
  Receive Date: 20151210
  Receipt Date: 20151210
  Transmission Date: 20160305
  Serious: Yes (Hospitalization)
  Sender: FDA-Public Use
  Company Number: FR-JNJFOC-20150211172

PATIENT
  Age: 32 Year
  Sex: Male
  Weight: 78 kg

DRUGS (8)
  1. TERCIAN [Concomitant]
     Active Substance: CYAMEMAZINE
     Indication: ANXIETY
     Dosage: 12.5 A 200MG
     Route: 065
     Dates: start: 20150330
  2. PARKINANE [Concomitant]
     Active Substance: TRIHEXYPHENIDYL HYDROCHLORIDE
     Indication: PARKINSONISM
     Dosage: 5A 15MG
     Route: 065
     Dates: start: 20141226
  3. XEPLION [Suspect]
     Active Substance: PALIPERIDONE PALMITATE
     Indication: SCHIZOPHRENIA
     Route: 030
     Dates: start: 20141121
  4. TERCIAN [Concomitant]
     Active Substance: CYAMEMAZINE
     Indication: ANXIETY
     Dosage: 12.5 A 200MG
     Route: 065
     Dates: start: 20150330
  5. ALPRAZOLAM. [Concomitant]
     Active Substance: ALPRAZOLAM
     Indication: ANXIETY
     Dosage: 0.25A 1.75G
     Route: 065
     Dates: start: 20131111
  6. ALPRAZOLAM. [Concomitant]
     Active Substance: ALPRAZOLAM
     Indication: ANXIETY
     Dosage: 0.25A 1.75G
     Route: 065
     Dates: start: 20131111
  7. XEPLION [Suspect]
     Active Substance: PALIPERIDONE PALMITATE
     Indication: SCHIZOPHRENIA
     Route: 030
     Dates: start: 20150318, end: 20150901
  8. PARKINANE [Concomitant]
     Active Substance: TRIHEXYPHENIDYL HYDROCHLORIDE
     Indication: ADVERSE DRUG REACTION
     Dosage: 5A 15MG
     Route: 065
     Dates: start: 20141226

REACTIONS (4)
  - Boredom [Not Recovered/Not Resolved]
  - Anxiety [Not Recovered/Not Resolved]
  - Delirium [Recovered/Resolved]
  - Delusion [Not Recovered/Not Resolved]

NARRATIVE: CASE EVENT DATE: 20150208
